FAERS Safety Report 11176738 (Version 2)
Quarter: 2015Q3

REPORT INFORMATION
  Report Type: Spontaneous
  Country: CZ (occurrence: CZ)
  Receive Date: 20150610
  Receipt Date: 20150714
  Transmission Date: 20151125
  Serious: Yes (Other)
  Sender: FDA-Public Use
  Company Number: CZ-ACCORD-031357

PATIENT
  Age: 70 Year
  Sex: Male

DRUGS (5)
  1. DOCETAXEL. [Suspect]
     Active Substance: DOCETAXEL
     Indication: PROSTATE CANCER
     Dates: start: 201111, end: 201404
  2. PREDNISONE/PREDNISONE ACETATE [Concomitant]
     Indication: PROSTATE CANCER
     Dosage: 30 MG/M2 IV FOR 6 WEEKS + 2 WEEKS BREAK
     Route: 042
  3. DOCETAXEL. [Suspect]
     Active Substance: DOCETAXEL
     Indication: PROSTATE CANCER
     Dates: start: 201111
  4. NO DRUG NAME [Suspect]
     Active Substance: UNSPECIFIED INGREDIENT
     Indication: PROSTATE CANCER
     Dates: start: 201309
  5. LEUPRORELIN/LEUPRORELIN ACETATE [Concomitant]
     Route: 058

REACTIONS (7)
  - Toxicity to various agents [Unknown]
  - Myalgia [Unknown]
  - Anaemia [Unknown]
  - Onycholysis [Unknown]
  - Flushing [Unknown]
  - Fatigue [Unknown]
  - Conjunctivitis [Unknown]
